FAERS Safety Report 18799558 (Version 1)
Quarter: 2021Q1

REPORT INFORMATION
  Report Type: Spontaneous
  Country: US (occurrence: US)
  Receive Date: 20210128
  Receipt Date: 20210128
  Transmission Date: 20210419
  Serious: Yes (Hospitalization, Other)
  Sender: FDA-Public Use
  Company Number: US-GRANULES-US-2021GRALIT00038

PATIENT
  Age: 43 Year
  Sex: Male

DRUGS (5)
  1. METFORMIN [Suspect]
     Active Substance: METFORMIN HYDROCHLORIDE
     Indication: TYPE 2 DIABETES MELLITUS
     Route: 048
  2. ACTIVATED CHARCOAL. [Interacting]
     Active Substance: ACTIVATED CHARCOAL
     Indication: PRODUCT USED FOR UNKNOWN INDICATION
     Route: 065
  3. VASOPRESSIN. [Interacting]
     Active Substance: VASOPRESSIN
     Indication: HAEMODYNAMIC TEST
     Route: 065
  4. POLYETHYLENE GLYCOL MICROSPHERES [Interacting]
     Active Substance: POLYETHYLENE GLYCOL
     Indication: PRODUCT USED FOR UNKNOWN INDICATION
     Route: 065
  5. LEVOPHED [Interacting]
     Active Substance: NOREPINEPHRINE BITARTRATE
     Indication: HAEMODYNAMIC TEST
     Route: 065

REACTIONS (3)
  - Lactic acidosis [Recovered/Resolved]
  - Suicide attempt [Unknown]
  - Intentional overdose [Unknown]
